FAERS Safety Report 6589727-3 (Version None)
Quarter: 2010Q1

REPORT INFORMATION
  Report Type: 
  Country: None (occurrence: None)
  Receive Date: 20100212
  Receipt Date: 20100203
  Transmission Date: 20100710
  Serious: Yes (Other)
  Sender: FDA-Public Use
  Company Number: CIP10000260

PATIENT
  Sex: Male

DRUGS (1)
  1. ASACOL [Suspect]

REACTIONS (1)
  - NEPHROLITHIASIS [None]
